FAERS Safety Report 8987562 (Version 1)
Quarter: 2012Q4

REPORT INFORMATION
  Report Type: 
  Country: PE (occurrence: PE)
  Receive Date: 20121227
  Receipt Date: 20121227
  Transmission Date: 20130627
  Serious: Yes (Hospitalization)
  Sender: FDA-Public Use
  Company Number: PE-PFIZER INC-2012329649

PATIENT
  Age: 89 Year
  Sex: Female

DRUGS (1)
  1. LIPITOR [Suspect]
     Dosage: 40 mg, UNK
     Route: 048

REACTIONS (1)
  - Respiratory disorder [Unknown]
